FAERS Safety Report 4328734-8 (Version None)
Quarter: 2004Q1

REPORT INFORMATION
  Report Type: 
  Country: None (occurrence: None)
  Receive Date: 20040329
  Receipt Date: 20040212
  Transmission Date: 20041129
  Serious: Yes (Hospitalization)
  Sender: FDA-Public Use
  Company Number: 04P-163-0250103-00

PATIENT
  Age: 72 Year
  Sex: Female

DRUGS (8)
  1. HUMIRA [Suspect]
     Indication: RHEUMATOID ARTHRITIS
     Dosage: 40 MG, 1 IN 2 WK, SUBCUTANEOUS
     Route: 058
     Dates: start: 20031001, end: 20031104
  2. HUMIRA [Suspect]
     Indication: RHEUMATOID ARTHRITIS
     Dosage: 40 MG, 1 IN 2 WK, SUBCUTANEOUS
     Route: 058
     Dates: start: 20040115
  3. PROPACET 100 [Concomitant]
  4. FLUOXETINE [Concomitant]
  5. CELECOXIB [Concomitant]
  6. CALCIUM CITRATE [Concomitant]
  7. ERGOCALCIFEROL [Concomitant]
  8. OMEPRAZOLE [Concomitant]

REACTIONS (3)
  - BLOOD PRESSURE INCREASED [None]
  - INJECTION SITE BURNING [None]
  - RHEUMATOID ARTHRITIS [None]
